FAERS Safety Report 10874896 (Version 1)
Quarter: 2015Q1

REPORT INFORMATION
  Report Type: Spontaneous
  Country: DE (occurrence: DE)
  Receive Date: 20150227
  Receipt Date: 20150227
  Transmission Date: 20150721
  Serious: Yes (Congenital Anomaly, Other)
  Sender: FDA-Public Use
  Company Number: DE-PFIZER INC-2015069995

PATIENT
  Age: 1 Day
  Sex: Female
  Weight: 2.8 kg

DRUGS (5)
  1. SERTRALIN PFIZER [Suspect]
     Active Substance: SERTRALINE HYDROCHLORIDE
     Indication: DEPRESSION
     Dosage: 100 MG, DAILY (0-8.5 GESTATIONAL WEEK)
     Route: 064
     Dates: start: 20131207, end: 20140206
  2. QUETIAPINE [Suspect]
     Active Substance: QUETIAPINE
     Indication: DEPRESSION
     Dosage: 100 MG, DAILY (0-8.5 GESTATIONAL WEEK)
     Route: 064
     Dates: start: 20131207, end: 20140206
  3. QUETIAPINE [Suspect]
     Active Substance: QUETIAPINE
     Indication: ANXIETY DISORDER
  4. VOMEX A ^ENDOPHARM^ [Concomitant]
     Indication: VOMITING IN PREGNANCY
     Dosage: UNK (3. - 27.1 GESTATIONAL WEEK)
     Route: 064
  5. FOLIC ACID. [Concomitant]
     Active Substance: FOLIC ACID
     Indication: PROPHYLAXIS OF NEURAL TUBE DEFECT
     Route: 064

REACTIONS (2)
  - Maternal exposure during pregnancy [Recovered/Resolved with Sequelae]
  - Teratoma benign [Recovered/Resolved with Sequelae]

NARRATIVE: CASE EVENT DATE: 20140829
